FAERS Safety Report 4996590-0 (Version None)
Quarter: 2006Q2

REPORT INFORMATION
  Report Type: 
  Country: None (occurrence: None)
  Receive Date: 20060505
  Receipt Date: 20060427
  Transmission Date: 20061013
  Serious: Yes (Other)
  Sender: FDA-Public Use
  Company Number: 2006057528

PATIENT
  Age: 62 Year
  Sex: Female

DRUGS (7)
  1. GEODON [Suspect]
     Indication: SEDATIVE THERAPY
     Dosage: 160 MG (80 MG, 2 IN 1 D)
     Dates: start: 20050101
  2. LANTUS [Concomitant]
  3. HUMALOG [Concomitant]
  4. LOPRESSOR [Concomitant]
  5. PLAVIX [Concomitant]
  6. ACIDOPHILUS (LACTOBACILLUS ACIDOPHILUS) [Concomitant]
  7. XANAX [Concomitant]

REACTIONS (5)
  - AGITATION [None]
  - ANGINA PECTORIS [None]
  - ANXIETY [None]
  - CHEST DISCOMFORT [None]
  - THERAPEUTIC RESPONSE UNEXPECTED [None]
